FAERS Safety Report 22983801 (Version 3)
Quarter: 2023Q4

REPORT INFORMATION
  Report Type: Spontaneous
  Country: JP (occurrence: JP)
  Receive Date: 20230926
  Receipt Date: 20231117
  Transmission Date: 20240109
  Serious: Yes (Life-Threatening, Hospitalization)
  Sender: FDA-Public Use
  Company Number: JP-GSK-JP2019JPN241263

PATIENT

DRUGS (67)
  1. MEPOLIZUMAB [Suspect]
     Active Substance: MEPOLIZUMAB
     Indication: Eosinophilic granulomatosis with polyangiitis
     Dosage: 300 MG
     Route: 058
     Dates: start: 20190213, end: 20190213
  2. MEPOLIZUMAB [Suspect]
     Active Substance: MEPOLIZUMAB
     Dosage: 100 MG
     Route: 058
     Dates: start: 20190408, end: 20190408
  3. MEPOLIZUMAB [Suspect]
     Active Substance: MEPOLIZUMAB
     Dosage: 100 MG
     Route: 058
     Dates: start: 20190508, end: 20190508
  4. MEPOLIZUMAB [Suspect]
     Active Substance: MEPOLIZUMAB
     Dosage: 100 MG
     Route: 058
     Dates: start: 20190708, end: 20190708
  5. MEPOLIZUMAB [Suspect]
     Active Substance: MEPOLIZUMAB
     Dosage: 200 MG
     Route: 058
     Dates: start: 20190805, end: 20190805
  6. MEPOLIZUMAB [Suspect]
     Active Substance: MEPOLIZUMAB
     Dosage: 300 MG
     Route: 058
     Dates: start: 20190902, end: 20190902
  7. MEPOLIZUMAB [Suspect]
     Active Substance: MEPOLIZUMAB
     Dosage: 300 MG
     Route: 058
     Dates: start: 20191003, end: 20191003
  8. MEPOLIZUMAB [Suspect]
     Active Substance: MEPOLIZUMAB
     Dosage: 300 MG
     Route: 058
     Dates: start: 20191028, end: 20191028
  9. MEPOLIZUMAB [Suspect]
     Active Substance: MEPOLIZUMAB
     Dosage: 300 MG
     Route: 058
     Dates: start: 20191125, end: 20191125
  10. MEPOLIZUMAB [Suspect]
     Active Substance: MEPOLIZUMAB
     Dosage: 300 MG
     Route: 058
     Dates: start: 20191224, end: 20191224
  11. MEPOLIZUMAB [Suspect]
     Active Substance: MEPOLIZUMAB
     Dosage: 300 MG
     Route: 058
     Dates: start: 20200120, end: 20200120
  12. MEPOLIZUMAB [Suspect]
     Active Substance: MEPOLIZUMAB
     Dosage: 300 MG
     Route: 058
     Dates: start: 20200217, end: 20200217
  13. MEPOLIZUMAB [Suspect]
     Active Substance: MEPOLIZUMAB
     Dosage: 300 MG
     Route: 058
     Dates: start: 20200317, end: 20200317
  14. MEPOLIZUMAB [Suspect]
     Active Substance: MEPOLIZUMAB
     Dosage: 300 MG
     Route: 058
     Dates: start: 20200413, end: 20200413
  15. MEPOLIZUMAB [Suspect]
     Active Substance: MEPOLIZUMAB
     Dosage: 300 MG
     Route: 058
     Dates: start: 20200511, end: 20200511
  16. MEPOLIZUMAB [Suspect]
     Active Substance: MEPOLIZUMAB
     Dosage: 300 MG
     Route: 058
     Dates: start: 20200831, end: 20200831
  17. MEPOLIZUMAB [Suspect]
     Active Substance: MEPOLIZUMAB
     Dosage: 300 MG
     Route: 058
     Dates: start: 20200928, end: 20200928
  18. MEPOLIZUMAB [Suspect]
     Active Substance: MEPOLIZUMAB
     Dosage: 300 MG
     Route: 058
     Dates: start: 20201027, end: 20201027
  19. MEPOLIZUMAB [Suspect]
     Active Substance: MEPOLIZUMAB
     Dosage: UNK
  20. NUCALA [Suspect]
     Active Substance: MEPOLIZUMAB
     Indication: Eosinophilic granulomatosis with polyangiitis
     Dosage: 300 MG
     Route: 058
  21. METHYLPREDNISOLONE [Concomitant]
     Active Substance: METHYLPREDNISOLONE
     Indication: Eosinophilic granulomatosis with polyangiitis
     Dosage: 14 MG, QD
     Dates: end: 20190220
  22. METHYLPREDNISOLONE [Concomitant]
     Active Substance: METHYLPREDNISOLONE
     Dosage: 18 MG, QD
     Dates: start: 20190221, end: 20190224
  23. METHYLPREDNISOLONE [Concomitant]
     Active Substance: METHYLPREDNISOLONE
     Dosage: 16 MG, QD
     Dates: start: 20190225, end: 20190407
  24. METHYLPREDNISOLONE [Concomitant]
     Active Substance: METHYLPREDNISOLONE
     Dosage: 14 MG, QD
     Dates: start: 20190408, end: 20190804
  25. METHYLPREDNISOLONE [Concomitant]
     Active Substance: METHYLPREDNISOLONE
     Dosage: 13 MG, QD
     Dates: start: 20190805, end: 20190818
  26. METHYLPREDNISOLONE [Concomitant]
     Active Substance: METHYLPREDNISOLONE
     Dosage: 12 MG, QD
     Dates: start: 20190819, end: 20190901
  27. METHYLPREDNISOLONE [Concomitant]
     Active Substance: METHYLPREDNISOLONE
     Dosage: 10 MG, QD
     Dates: start: 20190902, end: 20200401
  28. METHYLPREDNISOLONE [Concomitant]
     Active Substance: METHYLPREDNISOLONE
     Dosage: 9 MG, QD
     Dates: start: 20200402, end: 20200902
  29. METHYLPREDNISOLONE [Concomitant]
     Active Substance: METHYLPREDNISOLONE
     Dosage: 7 MG, QD
     Dates: start: 20200903, end: 20200916
  30. METHYLPREDNISOLONE [Concomitant]
     Active Substance: METHYLPREDNISOLONE
     Dosage: 6 MG, QD
     Dates: start: 20200917, end: 20200930
  31. METHYLPREDNISOLONE [Concomitant]
     Active Substance: METHYLPREDNISOLONE
     Dosage: 5 MG, QD
     Dates: start: 20201001, end: 20201014
  32. METHYLPREDNISOLONE [Concomitant]
     Active Substance: METHYLPREDNISOLONE
     Dosage: 4 MG, QD
     Dates: start: 20201015, end: 20201111
  33. METHYLPREDNISOLONE [Concomitant]
     Active Substance: METHYLPREDNISOLONE
     Dosage: 3 MG, QD
     Dates: start: 20201112
  34. BETAMETHASONE [Concomitant]
     Active Substance: BETAMETHASONE\BETAMETHASONE DIPROPIONATE
     Dosage: 16 MG, QD
     Route: 042
     Dates: start: 20200204, end: 20200206
  35. BETAMETHASONE [Concomitant]
     Active Substance: BETAMETHASONE\BETAMETHASONE DIPROPIONATE
     Dosage: 4 MG, QD
     Route: 042
     Dates: start: 20200207, end: 20200218
  36. BETAMETHASONE [Concomitant]
     Active Substance: BETAMETHASONE\BETAMETHASONE DIPROPIONATE
     Dosage: 2 MG, QD
     Route: 042
     Dates: start: 20200219
  37. FREEZE-DRIED SULFONATED HUMAN NORMAL IMMUNOGLOBULIN [Concomitant]
     Indication: Eosinophilic granulomatosis with polyangiitis
     Dosage: 15000 MG, QD
     Dates: start: 20190624, end: 20190624
  38. FREEZE-DRIED SULFONATED HUMAN NORMAL IMMUNOGLOBULIN [Concomitant]
     Indication: Hypogammaglobulinaemia
     Dosage: 300000 MG, QD
     Dates: start: 20190718, end: 20190724
  39. FREEZE-DRIED SULFONATED HUMAN NORMAL IMMUNOGLOBULIN [Concomitant]
     Dosage: 15000 MG, QD
     Dates: start: 20191125, end: 20191125
  40. FREEZE-DRIED SULFONATED HUMAN NORMAL IMMUNOGLOBULIN [Concomitant]
     Dosage: 15000 MG, QD
     Dates: start: 20191225, end: 20191225
  41. FREEZE-DRIED SULFONATED HUMAN NORMAL IMMUNOGLOBULIN [Concomitant]
     Dosage: 15000 MG, QD
     Dates: start: 20200305, end: 20200305
  42. FREEZE-DRIED SULFONATED HUMAN NORMAL IMMUNOGLOBULIN [Concomitant]
     Dosage: 15000 MG, QD
     Dates: start: 20200817, end: 20200817
  43. FREEZE-DRIED SULFONATED HUMAN NORMAL IMMUNOGLOBULIN [Concomitant]
     Dosage: 15000 MG, QD
     Dates: start: 20200923, end: 20200923
  44. FREEZE-DRIED SULFONATED HUMAN NORMAL IMMUNOGLOBULIN [Concomitant]
     Dosage: 15000 MG, QD
     Dates: start: 20201104, end: 20201104
  45. ATOVAQUONE [Concomitant]
     Active Substance: ATOVAQUONE
     Indication: Antifungal prophylaxis
  46. MONTELUKAST SODIUM [Concomitant]
     Active Substance: MONTELUKAST SODIUM
  47. FEBUXOSTAT [Concomitant]
     Active Substance: FEBUXOSTAT
  48. OLOPATADINE HYDROCHLORIDE [Concomitant]
     Active Substance: OLOPATADINE HYDROCHLORIDE
     Indication: Eosinophilic granulomatosis with polyangiitis
  49. ESOMEPRAZOLE MAGNESIUM [Concomitant]
     Active Substance: ESOMEPRAZOLE\ESOMEPRAZOLE MAGNESIUM\ESOMEPRAZOLE MAGNESIUM DIHYDRATE
     Indication: Prophylaxis against gastrointestinal ulcer
  50. MAGNESIUM OXIDE [Concomitant]
     Active Substance: MAGNESIUM OXIDE
  51. ALENDRONATE SODIUM [Concomitant]
     Active Substance: ALENDRONATE SODIUM
     Indication: Osteoporosis prophylaxis
  52. OLMESARTAN (OLMESARTAN MEDOXOMIL) [Concomitant]
  53. CALONAL [Concomitant]
     Active Substance: ACETAMINOPHEN
     Indication: Eosinophilic granulomatosis with polyangiitis
  54. SHAKUYAKUKANZOTO [Concomitant]
     Active Substance: HERBALS
     Indication: Muscle spasms
  55. PREGABALIN [Concomitant]
     Active Substance: PREGABALIN
     Indication: Eosinophilic granulomatosis with polyangiitis
  56. DULOXETINE HYDROCHLORIDE [Concomitant]
     Active Substance: DULOXETINE HYDROCHLORIDE
     Indication: Eosinophilic granulomatosis with polyangiitis
  57. RAMELTEON [Concomitant]
     Active Substance: RAMELTEON
     Indication: Insomnia
  58. TRAZODONE HYDROCHLORIDE [Concomitant]
     Active Substance: TRAZODONE HYDROCHLORIDE
     Indication: Insomnia
  59. SUVOREXANT [Concomitant]
     Active Substance: SUVOREXANT
     Indication: Insomnia
  60. ALENDRONATE SODIUM [Concomitant]
     Active Substance: ALENDRONATE SODIUM
     Indication: Osteoporosis prophylaxis
  61. SODIUM FERROUS CITRATE [Concomitant]
     Active Substance: SODIUM FERROUS CITRATE
  62. SPIRONOLACTONE [Concomitant]
     Active Substance: SPIRONOLACTONE
  63. POLAPREZINC [Concomitant]
     Active Substance: POLAPREZINC
     Indication: Zinc deficiency
  64. AMPHOTERICIN B [Concomitant]
     Active Substance: AMPHOTERICIN B
     Indication: Oral candidiasis
  65. TRAMADOL HYDROCHLORIDE [Concomitant]
     Active Substance: TRAMADOL HYDROCHLORIDE
     Indication: Osteoarthritis
  66. MIRTAZAPINE [Concomitant]
     Active Substance: MIRTAZAPINE
     Indication: Insomnia
  67. TEZEPELUMAB (GENETICAL RECOMBINATION) [Concomitant]
     Indication: Asthma
     Dosage: UNK

REACTIONS (1)
  - Asthma [Recovered/Resolved]

NARRATIVE: CASE EVENT DATE: 20220204
